FAERS Safety Report 10217255 (Version 1)
Quarter: 2014Q1

REPORT INFORMATION
  Report Type: Spontaneous
  Country: US (occurrence: None)
  Receive Date: 20140306
  Receipt Date: 20140306
  Transmission Date: 20141002
  Serious: Yes (Hospitalization)
  Sender: FDA-Public Use
  Company Number: 163-21880-13044870

PATIENT
  Age: 71 Year
  Sex: Female

DRUGS (9)
  1. REVLIMID [Suspect]
     Indication: MYELODYSPLASTIC SYNDROME
     Dosage: 21 IN 21 D
     Route: 048
     Dates: start: 20130402
  2. ASPIRIN (ACETYLSALICYLIC ACID) [Concomitant]
  3. FENOFIBRATE (FENOFIBRATE) [Concomitant]
  4. FISH OIL (FISH OIL) [Concomitant]
  5. GLUCOSAMINE (GLUCOSAMINE) [Concomitant]
  6. JUICE PLUS FIBRE(JUICE PLUS) [Concomitant]
  7. PRAVASTATIN SODIUM (PRAVASTATIN SODIUM) [Concomitant]
  8. SUPER B COMPLEX (VITAMIN--B KOMPLEX STANDARD) [Concomitant]
  9. VITAMIN C (ASCORBIC ACID) [Concomitant]

REACTIONS (1)
  - Platelet count decreased [None]
